FAERS Safety Report 21330396 (Version 3)
Quarter: 2022Q4

REPORT INFORMATION
  Report Type: Spontaneous
  Country: BR (occurrence: BR)
  Receive Date: 20220913
  Receipt Date: 20221021
  Transmission Date: 20230113
  Serious: Yes (Other)
  Sender: FDA-Public Use
  Company Number: BR-PFIZER INC-202201142608

PATIENT
  Age: 62 Year
  Sex: Female
  Weight: 159 kg

DRUGS (1)
  1. LORAZEPAM [Suspect]
     Active Substance: LORAZEPAM
     Indication: Somatic symptom disorder
     Dosage: 2 MG, 3X/DAY

REACTIONS (6)
  - Drug dependence [Not Recovered/Not Resolved]
  - Off label use [Unknown]
  - Product use issue [Unknown]
  - Feeling of despair [Not Recovered/Not Resolved]
  - Illness [Unknown]
  - Feeling abnormal [Unknown]

NARRATIVE: CASE EVENT DATE: 20170101
